FAERS Safety Report 4869761-1 (Version None)
Quarter: 2005Q4

REPORT INFORMATION
  Report Type: 
  Country: None (occurrence: None)
  Receive Date: 20051227
  Receipt Date: 20051212
  Transmission Date: 20060501
  Serious: Yes (Hospitalization)
  Sender: FDA-Public Use
  Company Number: 006224

PATIENT
  Age: 74 Year
  Sex: Female

DRUGS (4)
  1. WARFARIN SODIUM [Suspect]
     Indication: ANTICOAGULANT THERAPY
     Dosage: 1 MG, QD, ORAL
     Route: 048
     Dates: start: 20050101, end: 20050801
  2. XELODA [Suspect]
     Dosage: 4000 MG/DAY, ORAL
     Route: 048
  3. ZOMETA [Concomitant]
  4. SYNTHROID [Concomitant]

REACTIONS (3)
  - DRUG INTERACTION [None]
  - INTERNATIONAL NORMALISED RATIO ABNORMAL [None]
  - VENA CAVA THROMBOSIS [None]
